FAERS Safety Report 13406979 (Version 1)
Quarter: 2017Q2

REPORT INFORMATION
  Report Type: Spontaneous
  Country: US (occurrence: US)
  Receive Date: 20170405
  Receipt Date: 20170405
  Transmission Date: 20170830
  Serious: Yes (Hospitalization, Other)
  Sender: FDA-Public Use
  Company Number: US-SAOL THERAPEUTICS-2017SAO00454

PATIENT
  Age: 49 Year
  Sex: Female
  Weight: 41.27 kg

DRUGS (11)
  1. BACLOFEN. [Suspect]
     Active Substance: BACLOFEN
     Dosage: UNK
     Route: 037
     Dates: start: 201407
  2. SUFENTA [Suspect]
     Active Substance: SUFENTANIL CITRATE
     Dosage: 46.44 ?G, \DAY
     Route: 037
     Dates: start: 20170227
  3. TRAMADOL. [Concomitant]
     Active Substance: TRAMADOL
     Dosage: 1 TABLETS, AS NEEDED
     Route: 048
  4. BACLOFEN. [Suspect]
     Active Substance: BACLOFEN
     Indication: MUSCLE SPASTICITY
     Dosage: 230.64 ?G, \DAY
     Route: 037
     Dates: start: 20170208, end: 20170227
  5. BACLOFEN. [Suspect]
     Active Substance: BACLOFEN
     Indication: MUSCLE SPASTICITY
     Dosage: 2300 ?G, \DAY
     Route: 037
  6. SUFENTA [Suspect]
     Active Substance: SUFENTANIL CITRATE
     Dosage: 46.7 ?G, \DAY
     Route: 037
     Dates: start: 20170208, end: 20170227
  7. ZANAFLEX [Concomitant]
     Active Substance: TIZANIDINE HYDROCHLORIDE
     Dosage: 1 TABLETS, AS NEEDED
     Route: 048
  8. BACLOFEN. [Suspect]
     Active Substance: BACLOFEN
     Indication: CEREBRAL PALSY
  9. BACLOFEN. [Suspect]
     Active Substance: BACLOFEN
     Dosage: 240.99 ?G, \DAY
     Route: 037
     Dates: start: 20170227
  10. SUFENTA [Suspect]
     Active Substance: SUFENTANIL CITRATE
     Dosage: 465.69 ?G, \DAY
     Route: 037
  11. GABAPENTIN. [Concomitant]
     Active Substance: GABAPENTIN
     Dosage: 3 TABLETS, 3X/DAY
     Route: 048

REACTIONS (5)
  - Overdose [Recovered/Resolved]
  - Asthenia [Recovered/Resolved]
  - Nausea [Recovered/Resolved]
  - Vomiting [Recovered/Resolved]
  - Incorrect dose administered [Recovered/Resolved]

NARRATIVE: CASE EVENT DATE: 20170227
